FAERS Safety Report 17218598 (Version 1)
Quarter: 2019Q4

REPORT INFORMATION
  Report Type: Spontaneous
  Country: US (occurrence: US)
  Receive Date: 20191207
  Receipt Date: 20191207
  Transmission Date: 20200122
  Serious: Yes (Death)
  Sender: FDA-Public Use
  Company Number: None

PATIENT
  Sex: Female

DRUGS (4)
  1. XIFAXAN [Suspect]
     Active Substance: RIFAXIMIN
     Indication: HEPATIC CIRRHOSIS
     Route: 048
     Dates: start: 20180628
  2. XIFAXAN [Suspect]
     Active Substance: RIFAXIMIN
     Indication: ACUTE HEPATIC FAILURE
     Route: 048
     Dates: start: 20180628
  3. XIFAXAN [Suspect]
     Active Substance: RIFAXIMIN
     Indication: ASCITES
     Route: 048
     Dates: start: 20180628
  4. XIFAXAN [Suspect]
     Active Substance: RIFAXIMIN
     Indication: SUBACUTE HEPATIC FAILURE
     Route: 048
     Dates: start: 20180628

REACTIONS (1)
  - Death [None]
